FAERS Safety Report 16531119 (Version 1)
Quarter: 2019Q3

REPORT INFORMATION
  Report Type: Report from Study
  Country: FR (occurrence: FR)
  Receive Date: 20190705
  Receipt Date: 20190705
  Transmission Date: 20191004
  Serious: Yes (Other)
  Sender: FDA-Public Use
  Company Number: FR-AUROBINDO-AUR-APL-2019-037661

PATIENT

DRUGS (3)
  1. LEVETIRACETAM. [Suspect]
     Active Substance: LEVETIRACETAM
     Indication: EPILEPSY
     Dosage: UNK (UNKNOWN DOSE)
     Route: 063
  2. TOPIRAMATE. [Concomitant]
     Active Substance: TOPIRAMATE
     Indication: EPILEPSY
     Dosage: UNK (UNKNOWN DOSE)
     Route: 064
  3. LEVETIRACETAM. [Suspect]
     Active Substance: LEVETIRACETAM
     Dosage: 2000 MILLIGRAM, DAILY
     Route: 064

REACTIONS (3)
  - Exposure via breast milk [Unknown]
  - Motor developmental delay [Unknown]
  - Maternal exposure during pregnancy [Unknown]
